FAERS Safety Report 5710748-4 (Version None)
Quarter: 2008Q2

REPORT INFORMATION
  Report Type: 
  Country: None (occurrence: None)
  Receive Date: 20080421
  Receipt Date: 20080414
  Transmission Date: 20081010
  Serious: Yes (Hospitalization)
  Sender: FDA-Public Use
  Company Number: FR-ELI_LILLY_AND_COMPANY-FR200804000805

PATIENT
  Sex: Female
  Weight: 37 kg

DRUGS (12)
  1. GEMCITABINE HCL [Suspect]
     Indication: PANCREATIC CARCINOMA METASTATIC
     Dosage: 1000 MG/M2, OTHER
     Route: 042
     Dates: start: 20080313, end: 20080313
  2. BLINDED THERAPY [Suspect]
     Indication: PANCREATIC CARCINOMA METASTATIC
     Dosage: 5 MG, 2/D
     Route: 048
     Dates: start: 20080313, end: 20080315
  3. SPASFON [Concomitant]
     Dosage: UNK, UNKNOWN
     Route: 048
  4. NEXIUM [Concomitant]
     Dosage: 20 MG, UNKNOWN
     Route: 048
     Dates: start: 20070501
  5. IXPRIM [Concomitant]
     Dosage: UNK, UNKNOWN
     Route: 048
     Dates: end: 20080316
  6. CREON [Concomitant]
     Dosage: 25000 U, UNKNOWN
     Route: 048
  7. LASILIX [Concomitant]
     Dosage: 40 MG, DAILY (1/D)
     Route: 048
     Dates: start: 20080304, end: 20080311
  8. LASILIX [Concomitant]
     Dosage: 20 MG, DAILY (1/D)
     Route: 048
     Dates: start: 20080313
  9. DURAGESIC-100 [Concomitant]
     Dosage: 12 UG, UNKNOWN
     Route: 062
     Dates: start: 20080304, end: 20080316
  10. ACTISKENAN [Concomitant]
     Dosage: 5 MG, UNKNOWN
     Route: 062
     Dates: start: 20080304, end: 20080316
  11. DIFFU K [Concomitant]
     Dosage: UNK, UNKNOWN
     Route: 048
     Dates: start: 20080313
  12. INSULATARD [Concomitant]
     Dosage: 12 IU, UNKNOWN
     Route: 058
     Dates: start: 20070101

REACTIONS (4)
  - AMMONIA ABNORMAL [None]
  - CONFUSIONAL STATE [None]
  - HEPATIC ENCEPHALOPATHY [None]
  - LIVER FUNCTION TEST ABNORMAL [None]
